FAERS Safety Report 5276010-1 (Version None)
Quarter: 2007Q1

REPORT INFORMATION
  Report Type: 
  Country: None (occurrence: None)
  Receive Date: 20070321
  Receipt Date: 20070104
  Transmission Date: 20070707
  Serious: Yes (Hospitalization)
  Sender: FDA-Public Use
  Company Number: 234984K06USA

PATIENT
  Age: 47 Year
  Sex: Female

DRUGS (7)
  1. REBIF [Suspect]
     Indication: MULTIPLE SCLEROSIS
     Dosage: 44 MCG, 3 IN 1 WEEKS, SUBCUTANEOUS
     Route: 058
     Dates: start: 20051004
  2. CAPTOPRIL [Concomitant]
  3. SYNTHROID [Concomitant]
  4. PRAVACHOL [Concomitant]
  5. CELEXA [Concomitant]
  6. ROBINUL (GLYCOPYRRONIUM BROMIDE) [Concomitant]
  7. INSULIN (INSULIN /00030501/) [Concomitant]

REACTIONS (2)
  - DEHYDRATION [None]
  - VOMITING [None]
